FAERS Safety Report 13480119 (Version 2)
Quarter: 2017Q3

REPORT INFORMATION
  Report Type: Report from Study
  Country: None (occurrence: US)
  Receive Date: 20170425
  Receipt Date: 20170721
  Transmission Date: 20171127
  Serious: Yes (Other)
  Sender: FDA-Public Use
  Company Number: US-ABBVIE-17P-163-1953532-00

PATIENT
  Age: 54 Year
  Sex: Male

DRUGS (3)
  1. DEPAKOTE ER [Suspect]
     Active Substance: DIVALPROEX SODIUM
     Route: 048
     Dates: start: 201610
  2. DEPAKOTE ER [Suspect]
     Active Substance: DIVALPROEX SODIUM
     Indication: SEIZURE
     Route: 048
     Dates: end: 201609
  3. DEPAKOTE ER [Suspect]
     Active Substance: DIVALPROEX SODIUM
     Route: 048
     Dates: start: 201609, end: 201610

REACTIONS (2)
  - Incorrect dose administered [Recovered/Resolved]
  - Seizure [Recovered/Resolved]

NARRATIVE: CASE EVENT DATE: 201609
